FAERS Safety Report 6774326-0 (Version None)
Quarter: 2010Q2

REPORT INFORMATION
  Report Type: 
  Country: None (occurrence: None)
  Receive Date: 20100617
  Receipt Date: 20100607
  Transmission Date: 20101027
  Serious: Yes (Other)
  Sender: FDA-Public Use
  Company Number: US-JNJFOC-20100604424

PATIENT
  Age: 56 Year
  Sex: Female

DRUGS (4)
  1. LOPERAMIDE [Suspect]
     Route: 065
  2. LOPERAMIDE [Suspect]
     Indication: ILL-DEFINED DISORDER
     Route: 065
  3. CETRIZINE [Interacting]
     Indication: MULTIPLE ALLERGIES
     Route: 048
  4. ESTROGEN [Concomitant]
     Route: 065

REACTIONS (6)
  - ADVERSE EVENT [None]
  - BLOOD PRESSURE INCREASED [None]
  - DRUG INEFFECTIVE [None]
  - DRUG INTERACTION [None]
  - SLEEP DISORDER [None]
  - TACHYCARDIA [None]
